FAERS Safety Report 10842304 (Version 1)
Quarter: 2015Q1

REPORT INFORMATION
  Report Type: Spontaneous
  Country: US (occurrence: US)
  Receive Date: 20150220
  Receipt Date: 20150220
  Transmission Date: 20150721
  Serious: No
  Sender: FDA-Public Use
  Company Number: US-PFIZER INC-2015062080

PATIENT
  Age: 26 Year
  Sex: Male
  Weight: 61 kg

DRUGS (7)
  1. WELLBUTRIN [Concomitant]
     Active Substance: BUPROPION HYDROCHLORIDE
     Indication: ATTENTION DEFICIT/HYPERACTIVITY DISORDER
     Dosage: 150 MG, 2X/DAY
     Route: 048
  2. CONCERTA [Concomitant]
     Active Substance: METHYLPHENIDATE HYDROCHLORIDE
     Indication: ATTENTION DEFICIT/HYPERACTIVITY DISORDER
     Dosage: 36 MG, 2X/DAY
     Route: 048
  3. GABAPENTIN. [Suspect]
     Active Substance: GABAPENTIN
     Indication: TEMPOROMANDIBULAR JOINT SYNDROME
     Dosage: 300 MG, 3X/DAY
     Route: 048
     Dates: start: 20141222
  4. KLONOPIN [Concomitant]
     Active Substance: CLONAZEPAM
     Indication: ANXIETY
     Dosage: 1 MG, 2X/DAY
     Route: 048
  5. IBUPROFEN. [Concomitant]
     Active Substance: IBUPROFEN
     Indication: PAIN IN JAW
     Dosage: 800 MG 2X/DAY, AS NEEDED
     Route: 048
  6. ABILIFY [Concomitant]
     Active Substance: ARIPIPRAZOLE
     Indication: SCHIZOPHRENIA
     Dosage: 20 MG, 1X/DAY
     Route: 048
  7. TYLENOL [Concomitant]
     Active Substance: ACETAMINOPHEN
     Indication: PAIN IN JAW
     Dosage: 1000 MG 2X/DAY, AS NEEDED
     Route: 048

REACTIONS (1)
  - Drug ineffective for unapproved indication [Unknown]
